FAERS Safety Report 7386021-8 (Version None)
Quarter: 2011Q1

REPORT INFORMATION
  Report Type: 
  Country: None (occurrence: None)
  Receive Date: 20110331
  Receipt Date: 20110321
  Transmission Date: 20110831
  Serious: Yes (Death, Other)
  Sender: FDA-Public Use
  Company Number: FR-JNJFOC-20110310743

PATIENT
  Sex: Male

DRUGS (19)
  1. KARDEGIC [Concomitant]
  2. TOPALGIC [Suspect]
     Indication: BACK PAIN
     Route: 048
  3. SCOPOLAMINE [Suspect]
     Indication: PALLIATIVE CARE
     Route: 058
  4. ACETYLCYSTEINE [Concomitant]
  5. ALDACTONE [Concomitant]
  6. DILTIAZEM HCL [Concomitant]
     Indication: ANXIETY
  7. IRBESARTAN [Concomitant]
  8. MORPHINE [Concomitant]
     Indication: PAIN
  9. SPORANOX [Concomitant]
  10. LASIX [Concomitant]
     Dosage: 20MG/2ML
  11. LOVENOX [Concomitant]
  12. PERFALGAN [Concomitant]
     Indication: PAIN
  13. DIFFU K [Concomitant]
  14. SERETIDE [Concomitant]
     Indication: ASTHMA
     Dosage: 50/25 UG
  15. INSULIN HUMAN INJECTION, ISOPHANE [Concomitant]
  16. ATROVENT [Concomitant]
     Dosage: 0.5MG/2ML
  17. TIENAM [Suspect]
     Indication: PRODUCT USED FOR UNKNOWN INDICATION
     Dosage: 500/500MG
     Route: 042
  18. BRICANYL [Concomitant]
     Indication: ASTHMA
     Dosage: 5MG/2ML
  19. METHYLPREDNISOLONE SODIUM SUCCINATE [Concomitant]

REACTIONS (5)
  - DEATH [None]
  - ANXIETY [None]
  - AGITATION [None]
  - DELUSIONAL DISORDER, UNSPECIFIED TYPE [None]
  - HALLUCINATION [None]
